FAERS Safety Report 21387508 (Version 6)
Quarter: 2022Q4

REPORT INFORMATION
  Report Type: Spontaneous
  Country: NL (occurrence: NL)
  Receive Date: 20220928
  Receipt Date: 20221207
  Transmission Date: 20230112
  Serious: Yes (Death, Life-Threatening, Hospitalization, Other)
  Sender: FDA-Public Use
  Company Number: NL-JUBILANT PHARMA LTD-2022NL000356

PATIENT
  Age: 23 Year
  Sex: Male

DRUGS (22)
  1. OLANZAPINE [Suspect]
     Active Substance: OLANZAPINE
     Indication: Psychotic disorder
     Dosage: 20 MILLIGRAM (20 MG,UNK)
     Route: 048
  2. OLANZAPINE [Suspect]
     Active Substance: OLANZAPINE
     Indication: Psychotic symptom
     Dosage: 15 MILLIGRAM (15 MG,UNK, AT DAY 21)
     Route: 048
  3. OLANZAPINE [Suspect]
     Active Substance: OLANZAPINE
     Dosage: 25 MILLIGRAM (25 MG,UNK)
     Route: 048
  4. OLANZAPINE [Suspect]
     Active Substance: OLANZAPINE
     Dosage: 20 MILLIGRAM (20 MG,UNK)
     Route: 048
  5. OLANZAPINE [Suspect]
     Active Substance: OLANZAPINE
     Dosage: 15 MILLIGRAM
     Route: 048
  6. OLANZAPINE [Suspect]
     Active Substance: OLANZAPINE
     Dosage: 20 TO 25 MILLIGRAM
     Route: 048
  7. OLANZAPINE [Suspect]
     Active Substance: OLANZAPINE
     Dosage: 12.5 MILLIGRAM, QD
     Route: 048
  8. OLANZAPINE [Suspect]
     Active Substance: OLANZAPINE
     Dosage: 15 MILLIGRAM, QD
     Route: 065
  9. CLOZAPINE [Suspect]
     Active Substance: CLOZAPINE
     Indication: Psychotic disorder
     Dosage: 50 MILLIGRAM (50 MG, UNK (AT DAY 6))
     Route: 048
  10. CLOZAPINE [Suspect]
     Active Substance: CLOZAPINE
     Indication: Psychotic symptom
     Dosage: 25 MILLIGRAM, QD,25 MG, ONCE PER DAY,AT DAY 3
     Route: 048
  11. CLOZAPINE [Suspect]
     Active Substance: CLOZAPINE
     Dosage: 100 MILLIGRAM(100 MG,UNK (FROM DAY 10 TO 14)
     Route: 065
  12. CLOZAPINE [Suspect]
     Active Substance: CLOZAPINE
     Dosage: 150 MILLIGRAM (150 MG,UNK (AT DAY 17))
     Route: 048
  13. CLOZAPINE [Suspect]
     Active Substance: CLOZAPINE
     Dosage: 125 MILLIGRAM (125 MG,UNK (AT DAY 15))
     Route: 048
  14. CLOZAPINE [Suspect]
     Active Substance: CLOZAPINE
     Dosage: 250 MILLIGRAM (250 MG,UNK (AT DAY 21))
     Route: 048
  15. CLOZAPINE [Suspect]
     Active Substance: CLOZAPINE
     Dosage: 75 MILLIGRAM (75 MG,UNK (AT DAY 8))
     Route: 048
  16. CLOZAPINE [Suspect]
     Active Substance: CLOZAPINE
     Dosage: 12.5 MG, ONCE PER DAY,(AT DAY 1)
     Route: 048
  17. CLOZAPINE [Suspect]
     Active Substance: CLOZAPINE
     Dosage: 250 MILLIGRAM, QD
     Route: 048
  18. CLOZAPINE [Suspect]
     Active Substance: CLOZAPINE
     Dosage: UNK
     Route: 065
  19. ENOXIMONE [Suspect]
     Active Substance: ENOXIMONE
     Indication: Haemodynamic instability
     Dosage: UNK
     Route: 065
  20. METHYLENE BLUE [Suspect]
     Active Substance: METHYLENE BLUE
     Indication: Haemodynamic instability
     Dosage: UNK
     Route: 065
  21. NOREPINEPHRINE [Suspect]
     Active Substance: NOREPINEPHRINE
     Indication: Haemodynamic instability
     Dosage: UNK
     Route: 065
  22. VASOPRESSIN [Suspect]
     Active Substance: VASOPRESSIN
     Indication: Haemodynamic instability
     Dosage: UNK
     Route: 065

REACTIONS (23)
  - Intestinal pseudo-obstruction [Fatal]
  - Vomiting [Fatal]
  - Abdominal distension [Fatal]
  - Abdominal pain [Fatal]
  - Nausea [Fatal]
  - Vasoplegia syndrome [Fatal]
  - Multiple organ dysfunction syndrome [Fatal]
  - Rhabdomyolysis [Fatal]
  - Hypovolaemia [Fatal]
  - Hepatic failure [Fatal]
  - Gastrointestinal hypomotility [Fatal]
  - Acute kidney injury [Fatal]
  - Faecaloma [Not Recovered/Not Resolved]
  - Drug ineffective [Unknown]
  - Heart sounds abnormal [Recovered/Resolved]
  - Pulse absent [Recovered/Resolved]
  - Haemodynamic instability [Unknown]
  - Gallbladder necrosis [Not Recovered/Not Resolved]
  - Loss of consciousness [Recovered/Resolved]
  - Gastrointestinal necrosis [Not Recovered/Not Resolved]
  - Intestinal ischaemia [Not Recovered/Not Resolved]
  - Therapy partial responder [Recovering/Resolving]
  - Off label use [Recovered/Resolved]
